FAERS Safety Report 21569315 (Version 1)
Quarter: 2022Q4

REPORT INFORMATION
  Report Type: Spontaneous
  Country: GB (occurrence: GB)
  Receive Date: 20221109
  Receipt Date: 20221109
  Transmission Date: 20230113
  Serious: Yes (Other)
  Sender: FDA-Public Use
  Company Number: None

PATIENT
  Age: 79 Year
  Sex: Male
  Weight: 62.40 kg

DRUGS (25)
  1. OMEPRAZOLE [Suspect]
     Active Substance: OMEPRAZOLE
     Route: 048
  2. AMLODIPINE [Concomitant]
     Active Substance: AMLODIPINE BESYLATE
     Dates: start: 20220802
  3. ATORVASTATIN [Concomitant]
     Active Substance: ATORVASTATIN
     Dates: start: 20220802
  4. BETNOVATE [Concomitant]
     Active Substance: BETAMETHASONE
     Dosage: AS DIRECTED
     Dates: start: 20221013
  5. BEZAFIBRATE [Concomitant]
     Active Substance: BEZAFIBRATE
     Dates: start: 20220802
  6. BISOPROLOL [Concomitant]
     Active Substance: BISOPROLOL
     Dosage: 1.25MG; 2.5MG
     Dates: start: 20220802
  7. CARBOCYSTEINE [Concomitant]
     Active Substance: CARBOCYSTEINE
     Dosage: 2 SEPARATED DOSES
     Dates: start: 20220802
  8. CYCLIZINE [Concomitant]
     Active Substance: CYCLIZINE
     Dosage: 3 SEPARATED DOSES
     Dates: start: 20221013
  9. PREDNISOLONE [Concomitant]
     Active Substance: PREDNISOLONE
     Dosage: AFTER BOWEL ACTION 2 SEPARATED DOSES
     Dates: start: 20221012
  10. DIBUCAINE [Concomitant]
     Active Substance: DIBUCAINE
     Dosage: AFTER BOWEL ACTION 2 SEPARATED DOSES
     Dates: start: 20221012
  11. CREON [Concomitant]
     Active Substance: PANCRELIPASE AMYLASE\PANCRELIPASE LIPASE\PANCRELIPASE PROTEASE
     Dosage: 2 SEPARATED DOSES
     Dates: start: 20220720
  12. DIORALYTE [Concomitant]
     Active Substance: CITRIC ACID MONOHYDRATE\DEXTROSE\POTASSIUM CATION\SODIUM CHLORIDE
     Dosage: AFTER VOMITING
     Route: 048
     Dates: start: 20221013
  13. EUMOVATE [Concomitant]
     Active Substance: CLOBETASONE BUTYRATE
     Indication: Eczema
     Dosage: FOR 1-2 WEEKS (NOT ON FACE) 2 SEPARATED DOSES
     Dates: start: 20221003
  14. FINASTERIDE [Concomitant]
     Active Substance: FINASTERIDE
     Dates: start: 20220802
  15. FLUCLOXACILLIN [Concomitant]
     Active Substance: FLUCLOXACILLIN
     Dosage: 4 SEPARATED DOSES
     Dates: start: 20220825
  16. FLUTICASONE [Concomitant]
     Active Substance: FLUTICASONE
     Dosage: 27.5MICROGRAMS/DOSE
     Dates: start: 20220802
  17. FOLIC ACID [Concomitant]
     Active Substance: FOLIC ACID
     Dosage: FOR 4 MONTHS THEN REPEAT FOLATE LEVELS
     Dates: start: 20220916
  18. IBUPROFEN [Concomitant]
     Active Substance: IBUPROFEN
     Dosage: APPLY TO THE AFFECTED AREA(S) 3 SEPARATED DOSES
     Dates: start: 20220802
  19. ISOSORBIDE MONONITRATE [Concomitant]
     Active Substance: ISOSORBIDE MONONITRATE
     Dosage: AT 8AM AND AT 2PM 2 SEPARATED DOSES
     Dates: start: 20220802
  20. LEVOTHYROXINE [Concomitant]
     Active Substance: LEVOTHYROXINE
     Dosage: 25MICROGRAM;50MICROGRAM
     Dates: start: 20220802
  21. LISINOPRIL [Concomitant]
     Active Substance: LISINOPRIL
     Dosage: 5MG; 10MG
     Dates: start: 20220720
  22. MONTELUKAST [Concomitant]
     Active Substance: MONTELUKAST SODIUM
     Dosage: AT NIGHT
     Dates: start: 20220802
  23. NITROLINGUAL [Concomitant]
     Active Substance: NITROGLYCERIN
     Dates: start: 20220720
  24. SENNA [Concomitant]
     Active Substance: SENNA LEAF\SENNOSIDES\SENNOSIDES A AND B
     Dosage: AT NIGHT
     Dates: start: 20220802
  25. TRELEGY ELLIPTA [Concomitant]
     Active Substance: FLUTICASONE FUROATE\UMECLIDINIUM BROMIDE\VILANTEROL TRIFENATATE
     Dosage: 92MICROGRAMS/DOSE / 55MICROGRAMS/DOSE/22MICROGRAMS/DOSE
     Route: 055
     Dates: start: 20220802

REACTIONS (1)
  - Hyponatraemia [Recovering/Resolving]
